FAERS Safety Report 10512068 (Version 1)
Quarter: 2014Q4

REPORT INFORMATION
  Report Type: Spontaneous
  Country: GB (occurrence: GB)
  Receive Date: 20141010
  Receipt Date: 20141010
  Transmission Date: 20150528
  Serious: Yes (Other)
  Sender: FDA-Public Use
  Company Number: GB-BAUSCH-BL-2014-006186

PATIENT
  Age: 42 Year
  Sex: Male
  Weight: 81 kg

DRUGS (7)
  1. CETIRIZINE [Concomitant]
     Active Substance: CETIRIZINE HYDROCHLORIDE
     Indication: PRODUCT USED FOR UNKNOWN INDICATION
  2. BETNOVATE [Suspect]
     Active Substance: BETAMETHASONE
     Indication: DERMATITIS ATOPIC
     Route: 061
     Dates: start: 20000101, end: 20140716
  3. AVEENO [Concomitant]
     Active Substance: DIMETHICONE\HOMOSALATE\OCTINOXATE\OCTISALATE\TITANIUM DIOXIDE
     Indication: PRODUCT USED FOR UNKNOWN INDICATION
  4. PREDNISOLONE. [Suspect]
     Active Substance: PREDNISOLONE
     Indication: DERMATITIS ATOPIC
     Route: 048
     Dates: start: 20140615, end: 20140629
  5. THE 50:50 OINTMENT [Concomitant]
     Indication: PRODUCT USED FOR UNKNOWN INDICATION
  6. DERMOVATE [Suspect]
     Active Substance: CLOBETASOL
     Indication: DERMATITIS ATOPIC
     Route: 061
     Dates: start: 20000101, end: 20140716
  7. PETROLATUM/PARAFFIN, LIQUID/EMULSIFYING WAX [Concomitant]
     Indication: PRODUCT USED FOR UNKNOWN INDICATION

REACTIONS (20)
  - Chills [Unknown]
  - Lip swelling [Unknown]
  - Drug ineffective [Unknown]
  - Food allergy [Unknown]
  - Wound secretion [Unknown]
  - Pruritus generalised [Unknown]
  - Increased appetite [Unknown]
  - Erythema [Unknown]
  - Sleep disorder [Unknown]
  - Alopecia [Not Recovered/Not Resolved]
  - Nipple disorder [Unknown]
  - Oedema peripheral [Unknown]
  - Skin exfoliation [Unknown]
  - Nipple pain [Unknown]
  - Lymphadenopathy [Unknown]
  - Skin discolouration [Unknown]
  - Temperature regulation disorder [Unknown]
  - Withdrawal syndrome [Unknown]
  - Dyshidrotic eczema [Unknown]
  - Libido decreased [Unknown]

NARRATIVE: CASE EVENT DATE: 20140716
